FAERS Safety Report 5590943-8 (Version None)
Quarter: 2007Q4

REPORT INFORMATION
  Report Type: 
  Country: None (occurrence: None)
  Receive Date: 20071214
  Receipt Date: 20070705
  Transmission Date: 20080405
  Serious: Yes (Other)
  Sender: FDA-Public Use
  Company Number: S07-USA-02878-01

PATIENT
  Sex: Female

DRUGS (1)
  1. NAMENDA [Suspect]
     Dates: start: 20070101

REACTIONS (1)
  - LOSS OF CONSCIOUSNESS [None]
